FAERS Safety Report 8275219-2 (Version None)
Quarter: 2012Q2

REPORT INFORMATION
  Report Type: 
  Country: None (occurrence: None)
  Receive Date: 20120411
  Receipt Date: 20120406
  Transmission Date: 20120825
  Serious: Yes (Life-Threatening)
  Sender: FDA-Public Use
  Company Number: US-ELI_LILLY_AND_COMPANY-US201204002773

PATIENT
  Age: 61 Year
  Sex: Male

DRUGS (1)
  1. AXIRON [Suspect]
     Dosage: 60 MG, QD

REACTIONS (2)
  - PULMONARY EMBOLISM [None]
  - THROMBOSIS [None]
